FAERS Safety Report 15799201 (Version 1)
Quarter: 2018Q4

REPORT INFORMATION
  Report Type: Spontaneous
  Country: US (occurrence: US)
  Receive Date: 20181213
  Receipt Date: 20181213
  Transmission Date: 20190205
  Serious: No
  Sender: FDA-Public Use
  Company Number: None

PATIENT
  Age: 55 Year
  Sex: Female
  Weight: 89.81 kg

DRUGS (1)
  1. TALTZ [Suspect]
     Active Substance: IXEKIZUMAB
     Indication: PSORIATIC ARTHROPATHY
     Dosage: INJECT 160MG (2 PENS) SUBCUTANEOUSLYAT WEEK 0, THEN ?80MG (1 PEN)  AT  WEEK 2 AS DIRECTED
     Route: 058
     Dates: start: 201812

REACTIONS (1)
  - Product use issue [None]
